FAERS Safety Report 21563839 (Version 2)
Quarter: 2023Q1

REPORT INFORMATION
  Report Type: Spontaneous
  Country: US (occurrence: None)
  Receive Date: 20221108
  Receipt Date: 20230227
  Transmission Date: 20230418
  Serious: Yes (Other)
  Sender: FDA-Public Use
  Company Number: US-FARMAPROD-202210-2121

PATIENT
  Age: 79 Year
  Sex: Female

DRUGS (32)
  1. OXERVATE [Suspect]
     Active Substance: CENEGERMIN-BKBJ
     Indication: Neurotrophic keratopathy
     Route: 047
     Dates: start: 20220929, end: 20221116
  2. MACUHEALTH [Concomitant]
  3. CALCIUM [Concomitant]
     Active Substance: CALCIUM
  4. FLONASE ALLERGY RELIEF [Concomitant]
     Active Substance: FLUTICASONE PROPIONATE
  5. CRANBERRY-VITAMIN C [Concomitant]
  6. BIOTIN [Concomitant]
     Active Substance: BIOTIN
  7. VITAMIN B12 [Concomitant]
     Active Substance: CYANOCOBALAMIN
  8. PANTOPRAZOLE SODIUM [Concomitant]
     Active Substance: PANTOPRAZOLE SODIUM
     Dosage: DELAYED RELEASE
  9. ENALAPRIL MALEATE [Concomitant]
     Active Substance: ENALAPRIL MALEATE
  10. METHOTREXATE [Concomitant]
     Active Substance: METHOTREXATE
  11. SULFASALAZINE [Concomitant]
     Active Substance: SULFASALAZINE
  12. REFRESH OPTIVE MEGA-3 [Concomitant]
     Active Substance: CARBOXYMETHYLCELLULOSE SODIUM\GLYCERIN\POLYSORBATE 80
  13. LOTEMAX [Concomitant]
     Active Substance: LOTEPREDNOL ETABONATE
  14. REFRESH OPTIVE [Concomitant]
     Active Substance: CARBOXYMETHYLCELLULOSE SODIUM\GLYCERIN
     Dosage: 0.5% - 0.9%
  15. VOLTAREN [Concomitant]
     Active Substance: DICLOFENAC SODIUM
  16. AZULFIDINE [Concomitant]
     Active Substance: SULFASALAZINE
  17. REPATHA [Concomitant]
     Active Substance: EVOLOCUMAB
     Dosage: PEN INJECTOR. ONE EVERY 14 DAYS.
  18. FOLIC ACID [Concomitant]
     Active Substance: FOLIC ACID
     Route: 048
  19. VASOTEC [Concomitant]
     Active Substance: ENALAPRIL MALEATE
     Route: 048
  20. PROTONIX [Concomitant]
     Active Substance: PANTOPRAZOLE SODIUM
     Dosage: ENTERIC COATING
     Route: 048
  21. FLUOROMETHOLONE [Concomitant]
     Active Substance: FLUOROMETHOLONE
     Route: 047
  22. RESTASIS [Concomitant]
     Active Substance: CYCLOSPORINE
  23. TYLENOL [Concomitant]
     Active Substance: ACETAMINOPHEN
  24. GLYCOLAX [Concomitant]
     Active Substance: POLYETHYLENE GLYCOL 3350
  25. ANORO ELLIPTA [Concomitant]
     Active Substance: UMECLIDINIUM BROMIDE\VILANTEROL TRIFENATATE
     Dosage: 62.5-25 MICROGRAMS/ACTUATION BLISTER WITH DEVICE
  26. CYANOCOBALAMIN [Concomitant]
     Active Substance: CYANOCOBALAMIN
  27. ZYRTEC [Concomitant]
     Active Substance: CETIRIZINE HYDROCHLORIDE
  28. OXYGEN [Concomitant]
     Active Substance: OXYGEN
     Dosage: 2 LITERS PER MINUTE VIA NASAL CANNULA
  29. VITAMINS [Concomitant]
     Active Substance: VITAMINS
     Route: 048
  30. CALCIUM CARBONATE VITAMIN D3 [Concomitant]
     Dosage: 600 (1500) MILLIGRAMS - 400 UNIT PER TABLET
     Route: 048
  31. VITAMIN D3 [Concomitant]
     Active Substance: CHOLECALCIFEROL
     Route: 048
  32. EVENITY [Concomitant]
     Active Substance: ROMOSOZUMAB-AQQG
     Dosage: EV
     Route: 058

REACTIONS (2)
  - Foot operation [Unknown]
  - Conjunctivitis bacterial [Recovered/Resolved]

NARRATIVE: CASE EVENT DATE: 20221012
